FAERS Safety Report 12277547 (Version 2)
Quarter: 2019Q1

REPORT INFORMATION
  Report Type: Spontaneous
  Country: US (occurrence: US)
  Receive Date: 20160418
  Receipt Date: 20190306
  Transmission Date: 20190417
  Serious: Yes (Death, Hospitalization, Other)
  Sender: FDA-Public Use
  Company Number: US-ASTRAZENECA-2016SE40873

PATIENT
  Age: 21241 Day
  Sex: Female

DRUGS (16)
  1. ASPIRIN. [Concomitant]
     Active Substance: ASPIRIN
     Dates: start: 20151228
  2. CLINDAMYCIN. [Concomitant]
     Active Substance: CLINDAMYCIN
  3. ONGLYZA [Suspect]
     Active Substance: SAXAGLIPTIN HYDROCHLORIDE
     Indication: TYPE 2 DIABETES MELLITUS
     Route: 048
     Dates: start: 20131104, end: 20151105
  4. RISPERIDONE. [Concomitant]
     Active Substance: RISPERIDONE
  5. LORAZEPAM. [Concomitant]
     Active Substance: LORAZEPAM
  6. ONGLYZA [Suspect]
     Active Substance: SAXAGLIPTIN HYDROCHLORIDE
     Indication: TYPE 2 DIABETES MELLITUS
     Route: 048
     Dates: start: 20161105
  7. FUROSEMIDE. [Concomitant]
     Active Substance: FUROSEMIDE
     Dates: start: 20151228
  8. MELOXICAM. [Concomitant]
     Active Substance: MELOXICAM
  9. METFORMIN [Concomitant]
     Active Substance: METFORMIN HYDROCHLORIDE
  10. CARVEDILOL. [Concomitant]
     Active Substance: CARVEDILOL
  11. CARISOPRODOL. [Concomitant]
     Active Substance: CARISOPRODOL
  12. ATORVASTATIN [Concomitant]
     Active Substance: ATORVASTATIN
  13. GLIPIZIDE. [Concomitant]
     Active Substance: GLIPIZIDE
  14. KOMBIGLYZE XR [Suspect]
     Active Substance: METFORMIN HYDROCHLORIDE\SAXAGLIPTIN HYDROCHLORIDE
     Indication: TYPE 2 DIABETES MELLITUS
     Route: 048
  15. LISINOPRIL. [Concomitant]
     Active Substance: LISINOPRIL
  16. CLONAZEPAM. [Concomitant]
     Active Substance: CLONAZEPAM

REACTIONS (4)
  - Cardiac failure [Unknown]
  - Death [Fatal]
  - Left ventricular failure [Unknown]
  - Cardiac failure congestive [Unknown]

NARRATIVE: CASE EVENT DATE: 20150827
